FAERS Safety Report 9632565 (Version 2)
Quarter: 2013Q4

REPORT INFORMATION
  Report Type: Spontaneous
  Country: CA (occurrence: US)
  Receive Date: 20131018
  Receipt Date: 20131105
  Transmission Date: 20140711
  Serious: Yes (Other)
  Sender: FDA-Public Use
  Company Number: CA-AMGEN-CANSP2013072999

PATIENT
  Sex: Male

DRUGS (1)
  1. NEUPOGEN [Suspect]
     Indication: PERIPHERAL BLOOD STEM CELL APHERESIS
     Dosage: UNK
     Route: 065
     Dates: start: 201209, end: 201209

REACTIONS (5)
  - Pneumonia [Unknown]
  - Lymphocyte count decreased [Unknown]
  - Malaise [Unknown]
  - Pyrexia [Unknown]
  - White blood cell count decreased [Unknown]
